FAERS Safety Report 16481464 (Version 1)
Quarter: 2019Q2

REPORT INFORMATION
  Report Type: Spontaneous
  Country: US (occurrence: US)
  Receive Date: 20190627
  Receipt Date: 20190627
  Transmission Date: 20190711
  Serious: No
  Sender: FDA-Public Use
  Company Number: US-TEVA-2019-US-1059313

PATIENT
  Sex: Male

DRUGS (3)
  1. AJOVY [Concomitant]
     Active Substance: FREMANEZUMAB-VFRM
     Dosage: DOSE STRENGTH 225 MG / 1.5 ML
  2. MARIJUANA [Concomitant]
     Active Substance: CANNABIS SATIVA SUBSP. INDICA TOP
  3. COPAXONE [Suspect]
     Active Substance: GLATIRAMER ACETATE
     Dosage: FORM STRENGTH UNKNOWN
     Route: 065

REACTIONS (1)
  - Drug ineffective [Unknown]
